FAERS Safety Report 8413873-2 (Version None)
Quarter: 2012Q2

REPORT INFORMATION
  Report Type: 
  Country: None (occurrence: None)
  Receive Date: 20120605
  Receipt Date: 20120527
  Transmission Date: 20120825
  Serious: Yes (Other)
  Sender: FDA-Public Use
  Company Number: US-VERTEX PHARMACEUTICALS INC.-AE-2012-007947

PATIENT

DRUGS (1)
  1. INCIVEK [Suspect]
     Indication: HEPATITIS C
     Route: 048

REACTIONS (5)
  - DIARRHOEA [None]
  - RENAL IMPAIRMENT [None]
  - CRYOGLOBULINAEMIA [None]
  - DEHYDRATION [None]
  - VOMITING [None]
